FAERS Safety Report 9772692 (Version 1)
Quarter: 2013Q4

REPORT INFORMATION
  Report Type: Spontaneous
  Country: JP (occurrence: JP)
  Receive Date: 20131219
  Receipt Date: 20131219
  Transmission Date: 20140711
  Serious: Yes (Hospitalization, Other)
  Sender: FDA-Public Use
  Company Number: JP-ACTAVIS-2013-22645

PATIENT
  Age: 54 Year
  Sex: Female
  Weight: 52 kg

DRUGS (2)
  1. ZOLEDRONIC ACID (UNKNOWN) [Suspect]
     Indication: METASTASES TO BONE
     Dosage: 4 MG, ONCE A MONTH
     Route: 048
     Dates: start: 2005, end: 2005
  2. TRASTUZUMAB [Concomitant]
     Indication: METASTASES TO LIVER
     Dosage: UNK
     Route: 048
     Dates: start: 2005

REACTIONS (2)
  - Fanconi syndrome [Recovering/Resolving]
  - Tubulointerstitial nephritis [Recovering/Resolving]
